FAERS Safety Report 10095531 (Version 1)
Quarter: 2014Q2

REPORT INFORMATION
  Report Type: Spontaneous
  Country: US (occurrence: None)
  Receive Date: 20140418
  Receipt Date: 20140418
  Transmission Date: 20141212
  Serious: Yes (Other)
  Sender: FDA-Public Use
  Company Number: US-ZYDUS-003053

PATIENT
  Age: 32 Year
  Sex: Male

DRUGS (1)
  1. LOSARTAN/HYDROCHLOROTHIAZIDE [Suspect]
     Indication: HYPERTENSION

REACTIONS (2)
  - Pemphigoid [None]
  - Influenza like illness [None]
